FAERS Safety Report 9016796 (Version 12)
Quarter: 2022Q1

REPORT INFORMATION
  Report Type: Report from Study
  Country: CA (occurrence: CA)
  Receive Date: 20130117
  Receipt Date: 20220107
  Transmission Date: 20220423
  Serious: Yes (Hospitalization)
  Sender: FDA-Public Use
  Company Number: PHHY2013CA004220

PATIENT
  Age: 71 Year
  Sex: Male

DRUGS (3)
  1. GLEEVEC [Suspect]
     Active Substance: IMATINIB MESYLATE
     Indication: Gastrointestinal stromal tumour
     Dosage: 400 MG, QD
     Route: 048
     Dates: start: 20091224
  2. GLEEVEC [Suspect]
     Active Substance: IMATINIB MESYLATE
     Indication: Metastatic neoplasm
  3. CARBIDOPA\LEVODOPA [Concomitant]
     Active Substance: CARBIDOPA\LEVODOPA
     Indication: Parkinson^s disease
     Dosage: PRN
     Route: 065

REACTIONS (13)
  - Fistula [Not Recovered/Not Resolved]
  - Fistula discharge [Not Recovered/Not Resolved]
  - Mass [Unknown]
  - Pain [Unknown]
  - Visual impairment [Not Recovered/Not Resolved]
  - Breast swelling [Not Recovered/Not Resolved]
  - Periorbital swelling [Recovering/Resolving]
  - Peripheral swelling [Recovered/Resolved]
  - Swelling [Not Recovered/Not Resolved]
  - Joint injury [Unknown]
  - Gynaecomastia [Unknown]
  - Fluid retention [Unknown]
  - Peripheral swelling [Not Recovered/Not Resolved]

NARRATIVE: CASE EVENT DATE: 20141001
